FAERS Safety Report 6832385-0 (Version None)
Quarter: 2010Q3

REPORT INFORMATION
  Report Type: 
  Country: None (occurrence: None)
  Receive Date: 20100712
  Receipt Date: 20100701
  Transmission Date: 20110219
  Serious: Yes (Hospitalization)
  Sender: FDA-Public Use
  Company Number: TR-WATSON-2010-09088

PATIENT
  Age: 28 Year
  Sex: Female

DRUGS (5)
  1. MEPERIDINE HYDROCHLORIDE (WATSON LABORATORIES) [Suspect]
     Indication: PRODUCT USED FOR UNKNOWN INDICATION
     Dosage: UNK, PRN
  2. SERTRALINE HCL [Suspect]
     Indication: DEPRESSION
     Dosage: 50 MG, DAILY
     Dates: start: 20080309
  3. SERTRALINE HCL [Suspect]
     Indication: ANXIETY
     Dosage: 25 MG, DAILY
  4. TRAMADOL HCL [Suspect]
     Indication: PRODUCT USED FOR UNKNOWN INDICATION
     Dosage: UNK, PRN
  5. LINEZOLID [Suspect]
     Indication: ENTEROCOCCAL INFECTION
     Dosage: 1200 MG, DAILY
     Dates: start: 20080304

REACTIONS (2)
  - DRUG INTERACTION [None]
  - SEROTONIN SYNDROME [None]
